FAERS Safety Report 8529260 (Version 2)
Quarter: 2012Q4

REPORT INFORMATION
  Report Type: 
  Country: US (occurrence: US)
  Receive Date: 20120425
  Receipt Date: 20121129
  Transmission Date: 20130627
  Serious: Yes (Hospitalization)
  Sender: FDA-Public Use
  Company Number: US-BAYER-2012-039295

PATIENT
  Age: 22 Year
  Sex: Female

DRUGS (5)
  1. YAZ [Suspect]
     Dosage: UNK
     Dates: start: 2007, end: 20101013
  2. VALIUM [Concomitant]
     Dosage: UNK
     Route: 048
     Dates: start: 201010
  3. TRAMADOL [Concomitant]
     Dosage: 50 mg, 4IW
     Route: 048
     Dates: start: 201010
  4. ROBAXIN [Concomitant]
     Dosage: 750 mg,every 6-8 hours as meeded
     Route: 048
     Dates: start: 20101012
  5. CRANBERRY [Concomitant]
     Indication: RECURRENT URINARY TRACT INFECTION
     Dosage: 1 tablet daily
     Dates: start: 201010

REACTIONS (1)
  - Pulmonary embolism [None]
